FAERS Safety Report 11941100 (Version 1)
Quarter: 2016Q1

REPORT INFORMATION
  Report Type: Spontaneous
  Country: PL (occurrence: PL)
  Receive Date: 20160122
  Receipt Date: 20160122
  Transmission Date: 20160526
  Serious: Yes (Death)
  Sender: FDA-Public Use
  Company Number: PL-JUBILANT CADISTA PHARMACEUTICALS-2016JUB00015

PATIENT

DRUGS (1)
  1. PREDNISONE. [Suspect]
     Active Substance: PREDNISONE
     Indication: ORGANISING PNEUMONIA
     Route: 065

REACTIONS (2)
  - Death [Fatal]
  - Adverse drug reaction [Fatal]
